FAERS Safety Report 22053057 (Version 1)
Quarter: 2023Q1

REPORT INFORMATION
  Report Type: Spontaneous
  Country: US (occurrence: US)
  Receive Date: 20230302
  Receipt Date: 20230302
  Transmission Date: 20230418
  Serious: Yes (Other)
  Sender: FDA-Public Use
  Company Number: US-AUROBINDO-AUR-APL-2023-007038

PATIENT

DRUGS (1)
  1. AMOXICILLIN [Suspect]
     Active Substance: AMOXICILLIN
     Indication: Infection
     Dosage: 1 DOSAGE FORM
     Route: 065

REACTIONS (10)
  - Hypertension [Recovering/Resolving]
  - Haematuria [Recovering/Resolving]
  - Hyperhidrosis [Recovering/Resolving]
  - Illness [Recovering/Resolving]
  - Tremor [Recovering/Resolving]
  - Suspected product quality issue [Unknown]
  - Product size issue [Unknown]
  - Drug ineffective [Unknown]
  - Product odour abnormal [Unknown]
  - Suspected product contamination [Unknown]
